FAERS Safety Report 12186492 (Version 2)
Quarter: 2020Q4

REPORT INFORMATION
  Report Type: Spontaneous
  Country: SE (occurrence: SE)
  Receive Date: 20160317
  Receipt Date: 20201113
  Transmission Date: 20210113
  Serious: Yes (Other)
  Sender: FDA-Public Use
  Company Number: SE-009507513-1603SWE004563

PATIENT
  Age: 15 Year
  Sex: Female

DRUGS (2)
  1. INTRON A [Suspect]
     Active Substance: INTERFERON ALFA-2B
     Indication: CRANIOPHARYNGIOMA
     Dosage: 3X10^6 IU (ROUTE: INTRACYSTIC)
  2. INTRON A [Suspect]
     Active Substance: INTERFERON ALFA-2B
     Dosage: 1.5X 10^6 IU (ROUTE: INTRACYSTIC)
     Dates: start: 2013

REACTIONS (4)
  - Visual pathway disorder [Unknown]
  - Reaction to preservatives [Unknown]
  - Off label use [Unknown]
  - Carotid artery aneurysm [Recovering/Resolving]
